FAERS Safety Report 21225450 (Version 1)
Quarter: 2022Q3

REPORT INFORMATION
  Report Type: Spontaneous
  Country: US (occurrence: US)
  Receive Date: 20220818
  Receipt Date: 20220818
  Transmission Date: 20221027
  Serious: Yes (Other)
  Sender: FDA-Public Use
  Company Number: US-SUN PHARMACEUTICAL INDUSTRIES LTD-2022R1-349177

PATIENT
  Age: 14 Year
  Sex: Male

DRUGS (1)
  1. OLANZAPINE [Suspect]
     Active Substance: OLANZAPINE
     Indication: Psychotic disorder
     Dosage: 10 MILLIGRAM, DAILY
     Route: 065

REACTIONS (6)
  - Agitation [Recovering/Resolving]
  - Automatism [Unknown]
  - Catatonia [Unknown]
  - Echolalia [Unknown]
  - Echopraxia [Unknown]
  - Muscle rigidity [Unknown]
